FAERS Safety Report 10039613 (Version 1)
Quarter: 2014Q1

REPORT INFORMATION
  Report Type: Spontaneous
  Country: US (occurrence: US)
  Receive Date: 20140326
  Receipt Date: 20140326
  Transmission Date: 20141002
  Serious: Yes (Hospitalization, Other)
  Sender: FDA-Public Use
  Company Number: US-ABBVIE-14P-163-1214264-00

PATIENT
  Age: 69 Year
  Sex: Male
  Weight: 82.17 kg

DRUGS (4)
  1. NIASPAN (COATED) [Suspect]
     Indication: HIGH DENSITY LIPOPROTEIN DECREASED
     Dates: start: 2008, end: 2008
  2. NIASPAN (COATED) [Suspect]
     Dates: start: 2008
  3. ASPIRIN [Concomitant]
     Indication: PRODUCT USED FOR UNKNOWN INDICATION
  4. LISINOPRIL [Concomitant]
     Indication: HYPERTENSION

REACTIONS (7)
  - Blood urine present [Recovered/Resolved]
  - Aortic aneurysm [Unknown]
  - Hiccups [Recovered/Resolved]
  - Suture rupture [Recovered/Resolved]
  - Staphylococcal infection [Recovered/Resolved]
  - Device breakage [Recovered/Resolved]
  - Flushing [Recovered/Resolved]
